FAERS Safety Report 9728722 (Version 1)
Quarter: 2013Q4

REPORT INFORMATION
  Report Type: Spontaneous
  Country: US (occurrence: US)
  Receive Date: 20131204
  Receipt Date: 20131204
  Transmission Date: 20140711
  Serious: No
  Sender: FDA-Public Use
  Company Number: US-PFIZER INC-2013345184

PATIENT
  Age: 61 Year
  Sex: Male
  Weight: 86.2 kg

DRUGS (5)
  1. GABAPENTIN [Suspect]
     Indication: NEUROPATHY PERIPHERAL
     Dosage: 300 MG, 3X/DAY
     Dates: start: 2012
  2. GABAPENTIN [Suspect]
     Dosage: 800 MG, 4X/DAY
     Dates: end: 2013
  3. LYRICA [Concomitant]
     Indication: NEUROPATHY PERIPHERAL
     Dosage: 75 MG, 3X/DAY
     Dates: start: 2013
  4. ADVIL [Concomitant]
     Indication: NEUROPATHY PERIPHERAL
     Dosage: UNK
     Dates: start: 2013
  5. LANSOPRAZOLE [Concomitant]
     Indication: GASTROOESOPHAGEAL REFLUX DISEASE
     Dosage: UNK

REACTIONS (3)
  - Off label use [Unknown]
  - Somnolence [Unknown]
  - Drug ineffective for unapproved indication [Unknown]
